FAERS Safety Report 4292548-8 (Version None)
Quarter: 2004Q1

REPORT INFORMATION
  Report Type: 
  Country: None (occurrence: None)
  Receive Date: 20040211
  Receipt Date: 20040211
  Transmission Date: 20041129
  Serious: No
  Sender: FDA-Public Use
  Company Number: None

PATIENT
  Age: 43 Year
  Sex: Female
  Weight: 61.2356 kg

DRUGS (1)
  1. BIAXIN XL [Suspect]
     Indication: BRONCHITIS
     Dosage: 1000 MG Q DAY ORAL
     Route: 048
     Dates: start: 20040206, end: 20040207

REACTIONS (3)
  - DIZZINESS [None]
  - DYSGEUSIA [None]
  - HEADACHE [None]
